FAERS Safety Report 14585798 (Version 2)
Quarter: 2018Q1

REPORT INFORMATION
  Report Type: Spontaneous
  Country: US (occurrence: US)
  Receive Date: 20180301
  Receipt Date: 20180327
  Transmission Date: 20180509
  Serious: Yes (Other)
  Sender: FDA-Public Use
  Company Number: US-009507513-1802USA011795

PATIENT
  Age: 30 Year
  Sex: Female
  Weight: 88.44 kg

DRUGS (1)
  1. NEXPLANON [Suspect]
     Active Substance: ETONOGESTREL
     Indication: CONTRACEPTION
     Dosage: 1 IMPLANT (68 MG), ONE TIME; LEFT ARM
     Route: 059
     Dates: start: 20180108, end: 20180205

REACTIONS (7)
  - Oedema peripheral [Recovered/Resolved]
  - Implant site pain [Unknown]
  - Cellulitis [Recovered/Resolved]
  - Skin irritation [Unknown]
  - Hypersensitivity [Unknown]
  - Erythema [Recovered/Resolved]
  - Implant site mass [Unknown]

NARRATIVE: CASE EVENT DATE: 2018
